FAERS Safety Report 5575341-5 (Version None)
Quarter: 2007Q4

REPORT INFORMATION
  Report Type: 
  Country: None (occurrence: None)
  Receive Date: 20071221
  Receipt Date: 20071217
  Transmission Date: 20080405
  Serious: Yes (Death)
  Sender: FDA-Public Use
  Company Number: 163-20785-07111171

PATIENT
  Age: 74 Year
  Sex: Male

DRUGS (2)
  1. THALOMID [Suspect]
     Indication: MULTIPLE MYELOMA
     Dosage: 100 MG, 1 IN 1 D, ORAL, 100 MG, 1 IN 1 D, ORAL
     Route: 048
     Dates: start: 20050401, end: 20050801
  2. THALOMID [Suspect]
     Indication: MULTIPLE MYELOMA
     Dosage: 100 MG, 1 IN 1 D, ORAL, 100 MG, 1 IN 1 D, ORAL
     Route: 048
     Dates: start: 20070516, end: 20070918

REACTIONS (1)
  - CARDIOVASCULAR DISORDER [None]
